FAERS Safety Report 8409194-4 (Version None)
Quarter: 2012Q2

REPORT INFORMATION
  Report Type: 
  Country: None (occurrence: None)
  Receive Date: 20120604
  Receipt Date: 20120530
  Transmission Date: 20120825
  Serious: Yes (Hospitalization)
  Sender: FDA-Public Use
  Company Number: CA-ROCHE-1066221

PATIENT
  Sex: Male
  Weight: 65 kg

DRUGS (7)
  1. SULFASALAZINE [Concomitant]
     Dosage: THERAPY WAS ONGOING
  2. PLAQUENIL [Concomitant]
     Dosage: THERAPY WAS ONGOING
  3. TYLENOL W/ CODEINE NO. 3 [Concomitant]
     Dosage: THERAPY WAS ONGOING
  4. ARAVA [Concomitant]
     Dosage: THERAPY WAS ONGOING
  5. METHOTREXATE [Concomitant]
     Dosage: THERAPY WAS ONGOING
     Route: 058
  6. FOLIC ACID [Concomitant]
     Dosage: THERAPY WAS ONGOING
  7. ACTEMRA [Suspect]
     Indication: JUVENILE ARTHRITIS
     Route: 042
     Dates: start: 20110819, end: 20120405

REACTIONS (2)
  - VASCULITIS [None]
  - TESTICULAR NECROSIS [None]
